FAERS Safety Report 19009676 (Version 3)
Quarter: 2021Q2

REPORT INFORMATION
  Report Type: Spontaneous
  Country: US (occurrence: US)
  Receive Date: 20210316
  Receipt Date: 20210511
  Transmission Date: 20210717
  Serious: Yes (Other)
  Sender: FDA-Public Use
  Company Number: US-BIOGEN-2021BI00988778

PATIENT
  Sex: Female

DRUGS (1)
  1. TYSABRI [Suspect]
     Active Substance: NATALIZUMAB
     Indication: MULTIPLE SCLEROSIS
     Route: 065
     Dates: start: 20101223

REACTIONS (5)
  - Sexual dysfunction [Unknown]
  - Premenstrual syndrome [Unknown]
  - Suicidal ideation [Unknown]
  - Weight increased [Unknown]
  - Depression [Recovered/Resolved]
